FAERS Safety Report 19808864 (Version 1)
Quarter: 2021Q3

REPORT INFORMATION
  Report Type: Report from Study
  Country: AU (occurrence: AU)
  Receive Date: 20210908
  Receipt Date: 20210908
  Transmission Date: 20211014
  Serious: Yes (Hospitalization)
  Sender: FDA-Public Use
  Company Number: AU-EISAI MEDICAL RESEARCH-EC-2021-096455

PATIENT
  Age: 13 Year
  Sex: Male
  Weight: 53.4 kg

DRUGS (6)
  1. ASPIRIN. [Concomitant]
     Active Substance: ASPIRIN
     Indication: PLATELET DYSFUNCTION
     Route: 048
     Dates: start: 20210504
  2. IFOSFAMIDE. [Suspect]
     Active Substance: IFOSFAMIDE
     Indication: OSTEOSARCOMA METASTATIC
     Route: 041
     Dates: start: 20210525, end: 20210728
  3. GABAPENTIN. [Concomitant]
     Active Substance: GABAPENTIN
     Indication: NEURALGIA
     Dosage: 400 MG MANE, 300 MG NIGHT
     Route: 048
     Dates: start: 20210505
  4. ETOPOSIDE. [Suspect]
     Active Substance: ETOPOSIDE
     Indication: OSTEOSARCOMA METASTATIC
     Route: 041
     Dates: start: 20210525, end: 20210728
  5. BACTRIM [Concomitant]
     Active Substance: SULFAMETHOXAZOLE\TRIMETHOPRIM
     Indication: ANTIFUNGAL PROPHYLAXIS
     Dosage: 80 MG BD M,W,F
     Route: 048
     Dates: start: 20210505
  6. LENVATINIB [Suspect]
     Active Substance: LENVATINIB
     Indication: OSTEOSARCOMA METASTATIC
     Route: 048
     Dates: start: 20210525, end: 20210728

REACTIONS (2)
  - Febrile neutropenia [Recovered/Resolved]
  - Wound complication [Recovering/Resolving]

NARRATIVE: CASE EVENT DATE: 20210715
